FAERS Safety Report 25878688 (Version 1)
Quarter: 2025Q4

REPORT INFORMATION
  Report Type: Spontaneous
  Country: US (occurrence: US)
  Receive Date: 20251003
  Receipt Date: 20251003
  Transmission Date: 20260118
  Serious: Yes (Hospitalization, Other)
  Sender: DERMARITE INDUSTRIES
  Company Number: US-DERMARITE INDUSTRIES, LLC.-2025-DER-US000051

PATIENT

DRUGS (4)
  1. ZINC ACETATE [Suspect]
     Active Substance: ZINC ACETATE
     Indication: Therapeutic skin care topical
     Dosage: UNK UNK, 1/WEEK
     Route: 065
     Dates: start: 202503, end: 202508
  2. LISINOPRIL [Concomitant]
     Active Substance: LISINOPRIL
     Indication: Product used for unknown indication
     Dosage: UNK
  3. ATORVASTATIN [Concomitant]
     Active Substance: ATORVASTATIN
     Indication: Product used for unknown indication
     Dosage: UNK
  4. CELEBREX [Concomitant]
     Active Substance: CELECOXIB
     Indication: Product used for unknown indication
     Dosage: UNK

REACTIONS (3)
  - Pain [Not Recovered/Not Resolved]
  - Wound infection [Not Recovered/Not Resolved]
  - Knee arthroplasty [Recovered/Resolved]

NARRATIVE: CASE EVENT DATE: 20250401
